FAERS Safety Report 7282941-3 (Version None)
Quarter: 2011Q1

REPORT INFORMATION
  Report Type: 
  Country: None (occurrence: None)
  Receive Date: 20110209
  Receipt Date: 20110131
  Transmission Date: 20110831
  Serious: Yes (Other)
  Sender: FDA-Public Use
  Company Number: DE-JNJFOC-20110200447

PATIENT
  Age: 75 Year
  Sex: Male

DRUGS (4)
  1. HALDOL [Suspect]
     Indication: BIPOLAR DISORDER
     Route: 065
  2. QUETIAPINE [Concomitant]
     Route: 065
  3. OTHER DRUGS (UNSPECIFIED) [Concomitant]
     Route: 065
  4. HALDOL [Suspect]
     Route: 065

REACTIONS (2)
  - ANGIOEDEMA [None]
  - APATHY [None]
